FAERS Safety Report 4292211-3 (Version None)
Quarter: 2004Q1

REPORT INFORMATION
  Report Type: 
  Country: None (occurrence: None)
  Receive Date: 20040126
  Receipt Date: 20030826
  Transmission Date: 20041129
  Serious: No
  Sender: FDA-Public Use
  Company Number: USA030845504

PATIENT
  Age: 62 Year
  Sex: Female
  Weight: 66 kg

DRUGS (7)
  1. FORTEO [Suspect]
     Indication: OSTEOPOROSIS
     Dosage: 20 UG/DAY
     Dates: start: 20030819
  2. PRILOSEC [Concomitant]
  3. CELEBREX [Concomitant]
  4. DEXAMETHASONE [Concomitant]
  5. BLACK COHOSH [Concomitant]
  6. GINKOBA (GINKGO BILOBA EXTRACT) [Concomitant]
  7. ST JOHN'S WORT [Concomitant]

REACTIONS (3)
  - INJECTION SITE RASH [None]
  - INJECTION SITE STINGING [None]
  - PRURITUS [None]
